FAERS Safety Report 11180810 (Version 1)
Quarter: 2015Q2

REPORT INFORMATION
  Report Type: Spontaneous
  Country: US (occurrence: None)
  Receive Date: 20150610
  Receipt Date: 20150610
  Transmission Date: 20150821
  Serious: Yes (Hospitalization)
  Sender: FDA-Public Use
  Company Number: None

PATIENT
  Age: 65 Year
  Sex: Male
  Weight: 102 kg

DRUGS (2)
  1. WARFARIN [Suspect]
     Active Substance: WARFARIN
     Indication: ATRIAL FIBRILLATION
     Dates: start: 20110330, end: 20110427
  2. ASPIRIN. [Suspect]
     Active Substance: ASPIRIN
     Indication: CORONARY ARTERY DISEASE
     Dates: start: 20110419, end: 20110427

REACTIONS (6)
  - Gastric haemorrhage [None]
  - Intentional product misuse [None]
  - Cough [None]
  - Haemorrhage [None]
  - International normalised ratio increased [None]
  - Pyrexia [None]

NARRATIVE: CASE EVENT DATE: 20110427
